FAERS Safety Report 9927930 (Version 1)
Quarter: 2014Q1

REPORT INFORMATION
  Report Type: Spontaneous
  Country: US (occurrence: US)
  Receive Date: 20140227
  Receipt Date: 20140227
  Transmission Date: 20141002
  Serious: No
  Sender: FDA-Public Use
  Company Number: US-PFIZER INC-2014055191

PATIENT
  Age: 56 Year
  Sex: Male
  Weight: 75 kg

DRUGS (2)
  1. ARTHROTEC [Suspect]
     Indication: BACK DISORDER
     Dosage: 200 MG, 2X/DAY
  2. CYCLOBENZAPRINE [Concomitant]
     Indication: BACK DISORDER
     Dosage: 10 MG, UNK (2-3 TIMES A DAY)
     Route: 048

REACTIONS (2)
  - Intentional drug misuse [Unknown]
  - Back pain [Unknown]
